FAERS Safety Report 11641271 (Version 1)
Quarter: 2015Q4

REPORT INFORMATION
  Report Type: Spontaneous
  Country: JP (occurrence: JP)
  Receive Date: 20151019
  Receipt Date: 20151019
  Transmission Date: 20160304
  Serious: Yes (Hospitalization, Other)
  Sender: FDA-Public Use
  Company Number: JP-VALIDUS PHARMACEUTICALS LLC-JP-2015VAL000248

PATIENT

DRUGS (3)
  1. PARLODEL [Suspect]
     Active Substance: BROMOCRIPTINE MESYLATE
     Indication: PITUITARY-DEPENDENT CUSHING^S SYNDROME
     Dosage: (1.25-15MG)
     Route: 048
     Dates: start: 20090715
  2. PARLODEL [Suspect]
     Active Substance: BROMOCRIPTINE MESYLATE
     Dosage: 3.75 MG, QD
     Route: 048
     Dates: start: 20150305
  3. PARLODEL [Suspect]
     Active Substance: BROMOCRIPTINE MESYLATE
     Dosage: 11.25 MG, QD
     Route: 048
     Dates: start: 20150320, end: 20150430

REACTIONS (6)
  - Insomnia [Unknown]
  - Blood corticotrophin increased [Unknown]
  - Hyponatraemia [Unknown]
  - Mental disorder [Unknown]
  - Hypokalaemia [Unknown]
  - Drug ineffective [Unknown]

NARRATIVE: CASE EVENT DATE: 20090715
